FAERS Safety Report 16423775 (Version 1)
Quarter: 2019Q2

REPORT INFORMATION
  Report Type: Spontaneous
  Country: IT (occurrence: IT)
  Receive Date: 20190613
  Receipt Date: 20190613
  Transmission Date: 20190711
  Serious: Yes (Hospitalization, Other)
  Sender: FDA-Public Use
  Company Number: IT-KADMON PHARMACEUTICALS, LLC-KAD201201-000125

PATIENT
  Sex: Male

DRUGS (3)
  1. RIBAVIRIN. [Suspect]
     Active Substance: RIBAVIRIN
     Indication: HEPATITIS C
  2. DAPTOMYCIN. [Suspect]
     Active Substance: DAPTOMYCIN
     Indication: EVIDENCE BASED TREATMENT
  3. PEGINTERFERON ALFA-2B [Suspect]
     Active Substance: PEGINTERFERON ALFA-2B
     Indication: HEPATITIS C

REACTIONS (4)
  - Abscess limb [Unknown]
  - Rhabdomyolysis [Recovering/Resolving]
  - Staphylococcal sepsis [Unknown]
  - Hepatic enzyme increased [Unknown]
